FAERS Safety Report 6201024-4 (Version None)
Quarter: 2009Q2

REPORT INFORMATION
  Report Type: 
  Country: None (occurrence: None)
  Receive Date: 20090526
  Receipt Date: 20090518
  Transmission Date: 20091009
  Serious: Yes (Hospitalization)
  Sender: FDA-Public Use
  Company Number: US-ELI_LILLY_AND_COMPANY-US200902002796

PATIENT
  Sex: Male
  Weight: 119.73 kg

DRUGS (14)
  1. BYETTA [Suspect]
     Indication: TYPE 2 DIABETES MELLITUS
     Dosage: 5 UG, 2/D
     Route: 058
     Dates: start: 20060101, end: 20060101
  2. BYETTA [Suspect]
     Dosage: 10 UG, 2/D
     Route: 058
     Dates: start: 20060101
  3. BYETTA [Suspect]
     Dosage: 10 UG, 2/D
     Route: 058
  4. LISINOPRIL [Concomitant]
     Indication: BLOOD PRESSURE
     Dosage: 5 MG, DAILY (1/D)
  5. GLIMEPIRIDE [Concomitant]
     Indication: TYPE 2 DIABETES MELLITUS
     Dosage: 2 MG, DAILY (1/D)
  6. COUMADIN [Concomitant]
     Indication: CARDIAC DISORDER
     Dosage: 7.5 MG, 3/W
  7. COUMADIN [Concomitant]
     Dosage: 5 MG, 4/W
  8. ORAL ANTIDIABETICS [Concomitant]
     Indication: TYPE 2 DIABETES MELLITUS
     Dosage: 100 MG, DAILY (1/D)
  9. CRESTOR [Concomitant]
     Indication: BLOOD CHOLESTEROL
     Dosage: 10 MG, DAILY (1/D)
  10. METFORMIN HCL [Concomitant]
     Dosage: 1000 MG, 2/D
     Route: 048
  11. SYNTHROID [Concomitant]
     Indication: THYROID DISORDER
     Dosage: 50 MG, DAILY (1/D)
  12. TIKOSYN [Concomitant]
     Indication: ARRHYTHMIA
     Dosage: 250 MG, 2/D
  13. NASACORT [Concomitant]
     Dosage: UNK, AS NEEDED
     Route: 045
  14. TYLENOL (CAPLET) [Concomitant]
     Indication: ARTHRITIS
     Dosage: 2 D/F, 2/D

REACTIONS (1)
  - ATRIAL FIBRILLATION [None]
